FAERS Safety Report 9180174 (Version 1)
Quarter: 2012Q4

REPORT INFORMATION
  Report Type: 
  Country: FR (occurrence: FR)
  Receive Date: 20121029
  Receipt Date: 20121029
  Transmission Date: 20130627
  Serious: Yes (Other)
  Sender: FDA-Public Use
  Company Number: FR-PFIZER INC-2012266220

PATIENT
  Age: 58 Year
  Sex: Female
  Weight: 49 kg

DRUGS (17)
  1. ALPRESS [Suspect]
     Indication: HYPERTENSION ARTERIAL
     Dosage: 2.5 mg, 1x/day
     Route: 048
     Dates: end: 20120712
  2. GENTAMICIN ^PANPHARMA^ [Suspect]
     Indication: ANTIBACTERIAL PROPHYLAXIS
     Dosage: 250 mg, 1x/day
     Route: 042
     Dates: start: 20120711, end: 20120712
  3. VANCOMYCIN SANDOZ [Suspect]
     Indication: ANTIBACTERIAL PROPHYLAXIS
     Dosage: 750 mg, 1x/day
     Route: 042
     Dates: start: 20120711, end: 20120711
  4. HEPSERA [Suspect]
     Indication: CHRONIC HEPATITIS B
     Dosage: 10 mg, every 3 days
     Route: 048
  5. COAPROVEL [Suspect]
     Indication: HYPERTENSION ARTERIAL
     Dosage: 150mg/12.5mg, 1x/day
     Route: 048
     Dates: end: 20120714
  6. NEORAL [Suspect]
     Indication: RENAL TRANSPLANT
     Dosage: 50 mg, 2x/day
     Route: 048
     Dates: end: 20120714
  7. CORTANCYL [Concomitant]
     Dosage: 5 mg, 1x/day
  8. CELLCEPT [Concomitant]
     Dosage: 250 mg, 2x/day
  9. ZEFFIX [Concomitant]
     Dosage: 1 DF, every 3 days
  10. ADANCOR [Concomitant]
     Dosage: 10 mg, 2x/day
  11. KARDEGIC [Concomitant]
     Dosage: 75 mg, 1x/day
  12. INEXIUM [Concomitant]
     Dosage: 20 mg, 1x/day
  13. LYRICA [Concomitant]
     Dosage: 25 mg, 2x/day
     Dates: end: 20120714
  14. TAHOR [Concomitant]
     Dosage: 20 mg, 1x/day
  15. CALCITE [Concomitant]
     Dosage: 1 DF, 1x/day
  16. XANAX [Concomitant]
  17. ERYTHROPOIETIN [Concomitant]

REACTIONS (2)
  - Renal failure [Recovered/Resolved with Sequelae]
  - Hyperkalaemia [Recovered/Resolved]
